FAERS Safety Report 8383526-8 (Version None)
Quarter: 2012Q1

REPORT INFORMATION
  Report Type: 
  Country: None (occurrence: None)
  Receive Date: 20120323
  Receipt Date: 20110318
  Transmission Date: 20120608
  Serious: Yes (Hospitalization)
  Sender: FDA-Public Use
  Company Number: 163-21880-11032418

PATIENT
  Age: 70 Year
  Sex: Female
  Weight: 58.9676 kg

DRUGS (8)
  1. REVLIMID [Suspect]
     Indication: MULTIPLE MYELOMA
     Dosage: 10 MG, 1 IN 1 D, PO 5 MG, QOD X 3WKS ON, 1WK OFF, PO
     Route: 048
     Dates: start: 20090101
  2. REVLIMID [Suspect]
     Indication: MULTIPLE MYELOMA
     Dosage: 10 MG, 1 IN 1 D, PO 5 MG, QOD X 3WKS ON, 1WK OFF, PO
     Route: 048
     Dates: start: 20081101
  3. MAGNESIUM (MAGNESIUM) [Concomitant]
  4. DECADRON [Concomitant]
  5. VALTREX [Concomitant]
  6. AMLODIPINE [Concomitant]
  7. LYRICA [Concomitant]
  8. CARVEDILOL [Concomitant]

REACTIONS (2)
  - DIARRHOEA [None]
  - DYSPNOEA [None]
